FAERS Safety Report 5951987-7 (Version None)
Quarter: 2008Q4

REPORT INFORMATION
  Report Type: 
  Country: None (occurrence: None)
  Receive Date: 20081113
  Receipt Date: 20071019
  Transmission Date: 20090506
  Serious: No
  Sender: FDA-Public Use
  Company Number: A0688746A

PATIENT
  Age: 63 Year
  Sex: Male

DRUGS (3)
  1. COREG [Suspect]
     Indication: CARDIOMYOPATHY
     Dosage: 6.25MG TWICE PER DAY
     Route: 048
     Dates: start: 20041101
  2. COREG CR [Suspect]
     Indication: CARDIOMYOPATHY
     Dosage: 10MG PER DAY
     Route: 048
     Dates: start: 20070901
  3. ALTACE [Concomitant]

REACTIONS (4)
  - ABNORMAL DREAMS [None]
  - CHEST DISCOMFORT [None]
  - DEPRESSION [None]
  - FATIGUE [None]
